FAERS Safety Report 14106057 (Version 1)
Quarter: 2017Q4

REPORT INFORMATION
  Report Type: Spontaneous
  Country: US (occurrence: US)
  Receive Date: 20171018
  Receipt Date: 20171018
  Transmission Date: 20180321
  Serious: No
  Sender: FDA-Public Use
  Company Number: US-PRESTIGE BRANDS -2030573

PATIENT
  Age: 36 Year
  Sex: Female

DRUGS (1)
  1. MONISTAT 3 3-DAY PRE-FILLED APPLICATORS [Suspect]
     Active Substance: MICONAZOLE NITRATE
     Indication: VULVOVAGINAL MYCOTIC INFECTION
     Route: 067
     Dates: start: 20170612, end: 20170614

REACTIONS (7)
  - Vulvovaginal discomfort [Unknown]
  - Vulvovaginal burning sensation [Unknown]
  - Dysuria [Unknown]
  - Vulvovaginal swelling [Unknown]
  - Vulvovaginal pain [Unknown]
  - Sleep disorder [Unknown]
  - Vulvovaginal erythema [Unknown]

NARRATIVE: CASE EVENT DATE: 20170615
